FAERS Safety Report 12565565 (Version 2)
Quarter: 2016Q3

REPORT INFORMATION
  Report Type: Spontaneous
  Country: US (occurrence: US)
  Receive Date: 20160718
  Receipt Date: 20160802
  Transmission Date: 20161109
  Serious: No
  Sender: FDA-Public Use
  Company Number: US-BAYER-2016-138840

PATIENT
  Age: 10 Year
  Sex: Female

DRUGS (2)
  1. CLARITIN REDITABS [Suspect]
     Active Substance: LORATADINE
     Indication: NASAL CONGESTION
     Dosage: 1 DF, QD
     Route: 048
     Dates: start: 20160713, end: 20160714
  2. MUCINEX [Concomitant]
     Active Substance: GUAIFENESIN
     Dosage: UNK

REACTIONS (2)
  - Product use issue [None]
  - Expired product administered [None]

NARRATIVE: CASE EVENT DATE: 20160713
